FAERS Safety Report 9937994 (Version 1)
Quarter: 2014Q1

REPORT INFORMATION
  Report Type: Report from Study
  Country: US (occurrence: US)
  Receive Date: 20140303
  Receipt Date: 20140303
  Transmission Date: 20141002
  Serious: Yes (Other)
  Sender: FDA-Public Use
  Company Number: US-ROCHE-1354923

PATIENT
  Age: 55 Year
  Sex: Male
  Weight: 79.41 kg

DRUGS (74)
  1. AVASTIN [Suspect]
     Indication: COLON CANCER METASTATIC
     Route: 042
     Dates: start: 20130205
  2. AVASTIN [Suspect]
     Route: 042
     Dates: start: 20130219
  3. AVASTIN [Suspect]
     Route: 042
     Dates: start: 20130319
  4. AVASTIN [Suspect]
     Route: 042
     Dates: start: 20130402
  5. AVASTIN [Suspect]
     Route: 042
     Dates: start: 20130416
  6. AVASTIN [Suspect]
     Route: 042
     Dates: start: 20130430
  7. AVASTIN [Suspect]
     Route: 042
     Dates: start: 20130709
  8. AVASTIN [Suspect]
     Route: 042
     Dates: start: 20130723
  9. AVASTIN [Suspect]
     Route: 042
     Dates: start: 20130806
  10. AVASTIN [Suspect]
     Route: 042
     Dates: start: 20130820
  11. AVASTIN [Suspect]
     Route: 042
     Dates: start: 20130903
  12. AVASTIN [Suspect]
     Route: 042
     Dates: start: 20121211
  13. AVASTIN [Suspect]
     Route: 042
     Dates: start: 20121127
  14. AVASTIN [Suspect]
     Route: 042
     Dates: start: 20121113
  15. AVASTIN [Suspect]
     Route: 042
     Dates: start: 20121030
  16. AVASTIN [Suspect]
     Route: 042
     Dates: start: 20121016
  17. AVASTIN [Suspect]
     Route: 042
     Dates: start: 20121002
  18. AVASTIN [Suspect]
     Route: 042
     Dates: start: 20111107
  19. AVASTIN [Suspect]
     Route: 042
     Dates: start: 20120501
  20. AVASTIN [Suspect]
     Route: 042
     Dates: start: 20120626
  21. AVASTIN [Suspect]
     Route: 042
     Dates: start: 20120320
  22. AVASTIN [Suspect]
     Route: 042
     Dates: start: 20120110
  23. AVASTIN [Suspect]
     Route: 042
     Dates: start: 20130108
  24. AVASTIN [Suspect]
     Route: 042
     Dates: start: 20130122
  25. CATHFLO ACTIVASE [Suspect]
     Indication: PRODUCT USED FOR UNKNOWN INDICATION
     Route: 042
     Dates: start: 20121002
  26. 5-FU [Concomitant]
     Route: 042
     Dates: start: 20130205
  27. 5-FU [Concomitant]
     Route: 042
     Dates: start: 20130219
  28. 5-FU [Concomitant]
     Route: 065
     Dates: start: 20130319
  29. 5-FU [Concomitant]
     Route: 042
     Dates: start: 20130402
  30. 5-FU [Concomitant]
     Route: 065
     Dates: start: 20130416
  31. 5-FU [Concomitant]
     Route: 042
     Dates: start: 20130430
  32. BENADRYL (UNITED STATES) [Concomitant]
     Route: 065
     Dates: start: 20130205
  33. BENADRYL (UNITED STATES) [Concomitant]
     Route: 065
     Dates: start: 20130219
  34. BENADRYL (UNITED STATES) [Concomitant]
     Route: 065
     Dates: start: 20130319
  35. BENADRYL (UNITED STATES) [Concomitant]
     Route: 065
     Dates: start: 20130402
  36. BENADRYL (UNITED STATES) [Concomitant]
     Route: 065
     Dates: start: 20130416
  37. BENADRYL (UNITED STATES) [Concomitant]
     Route: 065
     Dates: start: 20130430
  38. BENADRYL (UNITED STATES) [Concomitant]
     Route: 065
     Dates: start: 20130723
  39. LEUCOVORIN [Concomitant]
     Route: 065
     Dates: start: 20130205
  40. LEUCOVORIN [Concomitant]
     Route: 065
     Dates: start: 20130219
  41. LEUCOVORIN [Concomitant]
     Route: 065
     Dates: start: 20130319
  42. LEUCOVORIN [Concomitant]
     Route: 065
     Dates: start: 20130402
  43. LEUCOVORIN [Concomitant]
     Route: 065
     Dates: start: 20130416
  44. LEUCOVORIN [Concomitant]
     Route: 065
     Dates: start: 20130430
  45. ALOXI [Concomitant]
     Route: 065
     Dates: start: 20130205
  46. ALOXI [Concomitant]
     Route: 065
     Dates: start: 20130219
  47. ALOXI [Concomitant]
     Route: 065
     Dates: start: 20130319
  48. ALOXI [Concomitant]
     Route: 065
     Dates: start: 20130402
  49. ALOXI [Concomitant]
     Route: 065
     Dates: start: 20130416
  50. ALOXI [Concomitant]
     Route: 065
     Dates: start: 20130430
  51. ATIVAN [Concomitant]
     Route: 065
     Dates: start: 20130205
  52. ATIVAN [Concomitant]
     Route: 065
     Dates: start: 20130219
  53. ATIVAN [Concomitant]
     Route: 065
     Dates: start: 20130319
  54. ATIVAN [Concomitant]
     Route: 065
     Dates: start: 20130402
  55. ATIVAN [Concomitant]
     Route: 065
     Dates: start: 20130416
  56. ATIVAN [Concomitant]
     Route: 065
     Dates: start: 20130430
  57. DECADRON [Concomitant]
     Route: 065
     Dates: start: 20130205
  58. DECADRON [Concomitant]
     Route: 065
     Dates: start: 20130219
  59. DECADRON [Concomitant]
     Route: 065
     Dates: start: 20130319
  60. DECADRON [Concomitant]
     Route: 065
     Dates: start: 20130402
  61. DECADRON [Concomitant]
     Route: 065
     Dates: start: 20130416
  62. DECADRON [Concomitant]
     Route: 065
     Dates: start: 20130430
  63. TYLENOL [Concomitant]
     Route: 065
     Dates: start: 20130219
  64. TYLENOL [Concomitant]
     Route: 065
     Dates: start: 20130319
  65. TYLENOL [Concomitant]
     Route: 065
     Dates: start: 20130402
  66. TYLENOL [Concomitant]
     Route: 065
     Dates: start: 20130430
  67. LISINOPRIL [Concomitant]
     Route: 065
     Dates: start: 20130319
  68. NORVASC [Concomitant]
     Route: 065
     Dates: start: 20130319
  69. ELOXATIN [Concomitant]
     Route: 042
     Dates: start: 20111107
  70. ELOXATIN [Concomitant]
     Route: 042
     Dates: start: 20111205
  71. ELOXATIN [Concomitant]
     Route: 042
     Dates: start: 20111219
  72. ELOXATIN [Concomitant]
     Route: 042
     Dates: start: 20120110
  73. ELOXATIN [Concomitant]
     Route: 042
     Dates: start: 20120124
  74. ELOXATIN [Concomitant]
     Route: 042
     Dates: start: 20120403

REACTIONS (48)
  - Malignant ascites [Recovering/Resolving]
  - Hypoaesthesia [Unknown]
  - Skin discolouration [Unknown]
  - Fatigue [Unknown]
  - Fatigue [Unknown]
  - Vision blurred [Unknown]
  - Paranasal sinus hypersecretion [Unknown]
  - Visual acuity reduced [Unknown]
  - Dyspnoea exertional [Unknown]
  - Dyspnoea [Unknown]
  - Lacrimation increased [Unknown]
  - Nausea [Unknown]
  - Balance disorder [Unknown]
  - Hypertension [Unknown]
  - Local swelling [Unknown]
  - Muscular weakness [Unknown]
  - Paraesthesia [Unknown]
  - Muscular weakness [Unknown]
  - Pruritus [Unknown]
  - Stomatitis [Unknown]
  - Night sweats [Unknown]
  - Dry skin [Unknown]
  - Dizziness [Unknown]
  - Rhinorrhoea [Unknown]
  - Increased tendency to bruise [Unknown]
  - Epistaxis [Unknown]
  - Decreased appetite [Unknown]
  - Cough [Unknown]
  - Abdominal distension [Unknown]
  - Flatulence [Unknown]
  - Headache [Unknown]
  - Pruritus [Unknown]
  - Arthritis [Unknown]
  - Neuropathy peripheral [Not Recovered/Not Resolved]
  - Deafness [Unknown]
  - Mononeuritis [Unknown]
  - Neuropathy peripheral [Unknown]
  - Anaemia [Unknown]
  - Musculoskeletal pain [Unknown]
  - Constipation [Unknown]
  - Upper-airway cough syndrome [Unknown]
  - Vomiting [Unknown]
  - Pollakiuria [Unknown]
  - Nocturia [Unknown]
  - Weight decreased [Unknown]
  - Tinnitus [Unknown]
  - Odynophagia [Unknown]
  - Neuropathy peripheral [Unknown]
